FAERS Safety Report 16317414 (Version 1)
Quarter: 2019Q2

REPORT INFORMATION
  Report Type: Spontaneous
  Country: NL (occurrence: NL)
  Receive Date: 20190516
  Receipt Date: 20190516
  Transmission Date: 20190711
  Serious: Yes (Other)
  Sender: FDA-Public Use
  Company Number: NL-SUN PHARMACEUTICAL INDUSTRIES LTD-2019RR-207929

PATIENT
  Sex: Female

DRUGS (3)
  1. CLOPIDOGREL 75MGCLOPIDOGREL TEVA TABL FILMOMHULD  75MG(ALSWATERS)C [Concomitant]
     Indication: PRODUCT USED FOR UNKNOWN INDICATION
     Dosage: UNK
     Route: 065
  2. PANTOPRAZOL [Suspect]
     Active Substance: PANTOPRAZOLE SODIUM
     Indication: TRANSIENT ISCHAEMIC ATTACK
     Dosage: UNK
     Route: 065
  3. SIMVASTATINE 20MG SIMVASTATINE TEVA TABLET FILMOMHULD 20MGSIMVASTATI [Concomitant]
     Indication: PRODUCT USED FOR UNKNOWN INDICATION
     Dosage: UNK
     Route: 065

REACTIONS (5)
  - Hyperhidrosis [Recovering/Resolving]
  - Fatigue [Recovering/Resolving]
  - Head discomfort [Recovering/Resolving]
  - Vision blurred [Recovered/Resolved]
  - Disorientation [Recovering/Resolving]
